FAERS Safety Report 9637820 (Version 1)
Quarter: 2013Q4

REPORT INFORMATION
  Report Type: Spontaneous
  Country: US (occurrence: US)
  Receive Date: 20131022
  Receipt Date: 20131022
  Transmission Date: 20140711
  Serious: Yes (Disabling)
  Sender: FDA-Public Use
  Company Number: US-PFIZER INC-2013300506

PATIENT
  Age: 55 Year
  Sex: Female
  Weight: 79.37 kg

DRUGS (5)
  1. CELEBREX [Suspect]
     Indication: OSTEOARTHRITIS
     Dosage: 200 MG, DAILY
  2. HYDROCHLOROTHIAZIDE [Concomitant]
     Indication: FLUID IMBALANCE
     Dosage: UNK, 1X/DAY
  3. LASIX [Concomitant]
     Indication: FLUID IMBALANCE
     Dosage: 20 MG, 3-4 TIMES IN A MONTH
  4. PROTONIX [Concomitant]
     Indication: GASTROOESOPHAGEAL REFLUX DISEASE
     Dosage: 40 MG, DAILY
  5. KLOR-CON M10 [Concomitant]
     Indication: FLUID IMBALANCE
     Dosage: UNK, 3-4 TIMES IN A MONTH

REACTIONS (4)
  - Back injury [Unknown]
  - Gait disturbance [Unknown]
  - Muscular weakness [Unknown]
  - Weight increased [Unknown]
